FAERS Safety Report 20950591 (Version 1)
Quarter: 2022Q2

REPORT INFORMATION
  Report Type: Spontaneous
  Country: US (occurrence: None)
  Receive Date: 20220611
  Receipt Date: 20220611
  Transmission Date: 20220721
  Serious: Yes (Hospitalization)
  Sender: FDA-Public Use
  Company Number: None

PATIENT
  Age: 19 Year
  Sex: Male
  Weight: 69.1 kg

DRUGS (3)
  1. CISPLATIN [Suspect]
     Active Substance: CISPLATIN
     Dates: end: 20220604
  2. IFOSFAMIDE [Suspect]
     Active Substance: IFOSFAMIDE
     Dates: end: 20220604
  3. TAXOL [Suspect]
     Active Substance: PACLITAXEL
     Dates: end: 20220531

REACTIONS (7)
  - Dizziness [None]
  - Pancytopenia [None]
  - Hyponatraemia [None]
  - Orthostatic hypotension [None]
  - Fatigue [None]
  - Failure to thrive [None]
  - SARS-CoV-2 test negative [None]

NARRATIVE: CASE EVENT DATE: 20220607
